FAERS Safety Report 19632911 (Version 7)
Quarter: 2022Q1

REPORT INFORMATION
  Report Type: Report from Study
  Country: US (occurrence: US)
  Receive Date: 20210730
  Receipt Date: 20220329
  Transmission Date: 20220423
  Serious: No
  Sender: FDA-Public Use
  Company Number: NVSC2021US167545

PATIENT
  Sex: Male

DRUGS (4)
  1. ENTRESTO [Suspect]
     Active Substance: SACUBITRIL\VALSARTAN
     Indication: Cardiac failure
     Dosage: 1 DF, BID(49.51 MG)
     Route: 048
     Dates: start: 20210707
  2. TRULICITY [Concomitant]
     Active Substance: DULAGLUTIDE
     Indication: Diabetes mellitus
     Dosage: UNK, INJECTION IN ARM
     Route: 065
     Dates: start: 20210930
  3. LORAZEPAM [Suspect]
     Active Substance: LORAZEPAM
     Indication: Anxiety disorder
     Route: 048
     Dates: start: 2019
  4. BUSPIRONE [Concomitant]
     Active Substance: BUSPIRONE HYDROCHLORIDE
     Indication: Anxiety disorder
     Dosage: 10 MG, BID (1 HALF TWICE A DAY, MORNING AND AFTERNOON)
     Route: 065
     Dates: start: 20220321

REACTIONS (11)
  - Depressed mood [Unknown]
  - Somnolence [Recovered/Resolved]
  - Feeling abnormal [Unknown]
  - Chest discomfort [Recovered/Resolved]
  - Amnesia [Unknown]
  - Sluggishness [Recovered/Resolved]
  - Lethargy [Recovered/Resolved]
  - Wrong technique in product usage process [Unknown]
  - Fatigue [Unknown]
  - Inappropriate schedule of product administration [Unknown]
  - Weight fluctuation [Not Recovered/Not Resolved]

NARRATIVE: CASE EVENT DATE: 20210101
